FAERS Safety Report 24125573 (Version 1)
Quarter: 2024Q3

REPORT INFORMATION
  Report Type: Spontaneous
  Country: DE (occurrence: DE)
  Receive Date: 20240723
  Receipt Date: 20240723
  Transmission Date: 20241017
  Serious: Yes (Hospitalization, Other)
  Sender: TAKEDA
  Company Number: DE-Medice Arzneimittel-MDKASPO30408

PATIENT
  Age: 48 Year
  Sex: Male

DRUGS (3)
  1. LISDEXAMFETAMINE DIMESYLATE [Suspect]
     Active Substance: LISDEXAMFETAMINE DIMESYLATE
     Indication: Attention deficit hyperactivity disorder
     Dosage: 60 MILLIGRAM, QD
     Route: 065
     Dates: start: 2022, end: 2022
  2. METHYLPHENIDATE [Suspect]
     Active Substance: METHYLPHENIDATE
     Indication: Attention deficit hyperactivity disorder
     Dosage: 60 MILLIGRAM, QD
     Route: 065
  3. INTUNIV [Concomitant]
     Active Substance: GUANFACINE HYDROCHLORIDE
     Dosage: 4 MILLIGRAM, QD
     Route: 065

REACTIONS (5)
  - Cerebral vascular occlusion [Recovered/Resolved]
  - Cerebrovascular accident [Recovered/Resolved]
  - Contraindicated product administered [Recovered/Resolved]
  - Product use issue [Recovered/Resolved]
  - Off label use [Recovered/Resolved]

NARRATIVE: CASE EVENT DATE: 20220101
